FAERS Safety Report 8020075-0 (Version None)
Quarter: 2012Q1

REPORT INFORMATION
  Report Type: 
  Country: None (occurrence: None)
  Receive Date: 20120103
  Receipt Date: 20111228
  Transmission Date: 20120608
  Serious: Yes (Other)
  Sender: FDA-Public Use
  Company Number: PHHY2011SV113276

PATIENT
  Age: 58 Year
  Sex: Female

DRUGS (4)
  1. METFORMIN HCL [Concomitant]
  2. LAMISIL [Suspect]
     Indication: FUNGAL SKIN INFECTION
     Dosage: 250 MG, QD
     Route: 048
     Dates: start: 20110101
  3. LAMISIL [Suspect]
  4. ATENOLOL [Concomitant]

REACTIONS (2)
  - RENAL IMPAIRMENT [None]
  - DRUG INEFFECTIVE [None]
